FAERS Safety Report 18374899 (Version 2)
Quarter: 2021Q1

REPORT INFORMATION
  Report Type: Report from Study
  Country: NL (occurrence: NL)
  Receive Date: 20201013
  Receipt Date: 20210115
  Transmission Date: 20210419
  Serious: Yes (Hospitalization)
  Sender: FDA-Public Use
  Company Number: NL-ROCHE-2687297

PATIENT
  Age: 67 Year
  Sex: Female

DRUGS (5)
  1. GENTAMICIN. [Concomitant]
     Active Substance: GENTAMICIN
     Dates: start: 20200921, end: 20200921
  2. DICLOFENAC SODIUM. [Concomitant]
     Active Substance: DICLOFENAC SODIUM
     Dates: start: 20200921, end: 20200921
  3. ATEZOLIZUMAB. [Suspect]
     Active Substance: ATEZOLIZUMAB
     Indication: NEOPLASM
     Dosage: LAST DOSE PRIOR TO EVENT ON 08/SEP/2020
     Route: 041
     Dates: start: 20190806
  4. CEFTRIAXONE. [Concomitant]
     Active Substance: CEFTRIAXONE
     Dates: start: 20200921, end: 20200921
  5. OXAZEPAM. [Concomitant]
     Active Substance: OXAZEPAM
     Indication: ANXIETY
     Dates: start: 20200921, end: 20200921

REACTIONS (1)
  - Endoscopic retrograde cholangiopancreatography [Recovered/Resolved]

NARRATIVE: CASE EVENT DATE: 20200921
